FAERS Safety Report 25078665 (Version 1)
Quarter: 2025Q1

REPORT INFORMATION
  Report Type: Spontaneous
  Country: US (occurrence: US)
  Receive Date: 20250314
  Receipt Date: 20250314
  Transmission Date: 20250409
  Serious: No
  Sender: SANOFI AVENTIS
  Company Number: US-SA-2025SA074856

PATIENT
  Sex: Male
  Weight: 66.82 kg

DRUGS (6)
  1. DUPIXENT [Suspect]
     Active Substance: DUPILUMAB
     Indication: Dermatitis atopic
     Dosage: 1 DF, QOW
     Route: 058
  2. CORTISONE ACETATE [Concomitant]
     Active Substance: CORTISONE ACETATE
  3. ALLOPURINOL [Concomitant]
     Active Substance: ALLOPURINOL
  4. ALBUTEROL SULFATE [Concomitant]
     Active Substance: ALBUTEROL SULFATE
  5. CLOBETASOL [Concomitant]
     Active Substance: CLOBETASOL
  6. TRIAMCINOLONE ACETONIDE [Concomitant]
     Active Substance: TRIAMCINOLONE ACETONIDE

REACTIONS (2)
  - Influenza [Unknown]
  - Pain [Unknown]
